FAERS Safety Report 8112717-6 (Version None)
Quarter: 2012Q1

REPORT INFORMATION
  Report Type: 
  Country: None (occurrence: None)
  Receive Date: 20120131
  Receipt Date: 20120117
  Transmission Date: 20120608
  Serious: Yes (Hospitalization, Other)
  Sender: FDA-Public Use
  Company Number: 2012MA000792

PATIENT
  Sex: Female
  Weight: 82.1011 kg

DRUGS (12)
  1. NITROGLYCERIN [Concomitant]
  2. PREMARIN [Concomitant]
  3. RELPAX [Concomitant]
  4. ASPIRIN [Concomitant]
  5. ACIPHEX [Concomitant]
  6. CARDIZEM [Concomitant]
  7. DIGOXIN [Suspect]
     Dosage: 250 MCG;QD;PO
     Route: 048
     Dates: start: 20050127, end: 20070918
  8. POTASSIUM [Concomitant]
  9. TOPROL-XL [Concomitant]
  10. CALAN [Concomitant]
  11. DARVOCET [Concomitant]
  12. HYDROCHLOROTHIAZIDE [Concomitant]

REACTIONS (23)
  - ATRIOVENTRICULAR BLOCK COMPLETE [None]
  - VENTRICULAR EXTRASYSTOLES [None]
  - MITRAL VALVE INCOMPETENCE [None]
  - TRICUSPID VALVE INCOMPETENCE [None]
  - CARDIAC MURMUR [None]
  - OESOPHAGEAL MASS [None]
  - MIGRAINE [None]
  - ALANINE AMINOTRANSFERASE DECREASED [None]
  - GASTROOESOPHAGEAL REFLUX DISEASE [None]
  - CARDIAC VALVE DISEASE [None]
  - PULMONARY VALVE INCOMPETENCE [None]
  - ARCUS LIPOIDES [None]
  - MEDIASTINAL MASS [None]
  - HYPERTENSION [None]
  - COMPUTERISED TOMOGRAM ABNORMAL [None]
  - CARDIOACTIVE DRUG LEVEL INCREASED [None]
  - VISUAL IMPAIRMENT [None]
  - TOXICITY TO VARIOUS AGENTS [None]
  - SINUS BRADYCARDIA [None]
  - ASPARTATE AMINOTRANSFERASE DECREASED [None]
  - SUPRAVENTRICULAR TACHYCARDIA [None]
  - SCINTILLATING SCOTOMA [None]
  - SICK SINUS SYNDROME [None]
